FAERS Safety Report 6107200-3 (Version None)
Quarter: 2009Q1

REPORT INFORMATION
  Report Type: 
  Country: None (occurrence: None)
  Receive Date: 20090309
  Receipt Date: 20090303
  Transmission Date: 20090719
  Serious: Yes (Hospitalization)
  Sender: FDA-Public Use
  Company Number: US-KINGPHARMUSA00001-K200900215

PATIENT
  Sex: Female

DRUGS (5)
  1. ALTACE [Suspect]
     Indication: HYPERTENSION
     Dosage: 5 MG, QD
     Route: 048
     Dates: start: 20070101
  2. BELOC-ZOC COMP [Suspect]
     Indication: HYPERTENSION
     Dosage: 1 UNK, QD
     Route: 048
     Dates: start: 20050101, end: 20080808
  3. HEXAL [Concomitant]
     Indication: ANGIOPATHY
     Dosage: 100 MG, UNK
     Route: 048
     Dates: start: 20060101, end: 20080808
  4. VALIUM [Concomitant]
     Indication: OSTEOPOROSIS
     Dosage: 500 MG, UNK
     Route: 048
  5. FOSAMAX [Concomitant]
     Indication: OSTEOPOROSIS
     Dosage: 70 MG, UNK
     Dates: start: 20080401

REACTIONS (5)
  - FALL [None]
  - FEELING ABNORMAL [None]
  - NAUSEA [None]
  - PRESYNCOPE [None]
  - TINNITUS [None]
